FAERS Safety Report 7249868-4 (Version None)
Quarter: 2011Q1

REPORT INFORMATION
  Report Type: 
  Country: None (occurrence: None)
  Receive Date: 20110128
  Receipt Date: 20100610
  Transmission Date: 20110831
  Serious: No
  Sender: FDA-Public Use
  Company Number: A0869575A

PATIENT
  Age: 56 Year
  Sex: Female

DRUGS (3)
  1. SYNTHROID [Concomitant]
     Dosage: .025MG PER DAY
  2. BUPROPION HCL [Suspect]
     Indication: DEPRESSION
     Dosage: 150MG PER DAY
     Route: 048
     Dates: end: 20090501
  3. WELLBUTRIN XL [Suspect]
     Indication: DEPRESSION
     Dosage: 150MG PER DAY
     Route: 048
     Dates: start: 20000101

REACTIONS (5)
  - VISUAL IMPAIRMENT [None]
  - AGITATION [None]
  - NAUSEA [None]
  - IMPAIRED DRIVING ABILITY [None]
  - ABDOMINAL PAIN UPPER [None]
